FAERS Safety Report 12331321 (Version 2)
Quarter: 2016Q2

REPORT INFORMATION
  Report Type: Spontaneous
  Country: JP (occurrence: JP)
  Receive Date: 20160504
  Receipt Date: 20160518
  Transmission Date: 20160815
  Serious: Yes (Death)
  Sender: FDA-Public Use
  Company Number: JP-PURDUE PHARMA-GBR-2016-0035875

PATIENT
  Age: 60 Year
  Sex: Male

DRUGS (1)
  1. OXYCONTIN [Suspect]
     Active Substance: OXYCODONE HYDROCHLORIDE
     Indication: CANCER PAIN
     Dosage: 80 MG, DAILY
     Route: 048
     Dates: end: 20160421

REACTIONS (1)
  - Subdural haematoma [Fatal]

NARRATIVE: CASE EVENT DATE: 20160422
